FAERS Safety Report 9971386 (Version 4)
Quarter: 2014Q2

REPORT INFORMATION
  Report Type: Spontaneous
  Country: US (occurrence: US)
  Receive Date: 20140306
  Receipt Date: 20140522
  Transmission Date: 20141212
  Serious: Yes (Life-Threatening, Hospitalization)
  Sender: FDA-Public Use
  Company Number: US-BAYER-2014-032978

PATIENT
  Age: 34 Year
  Sex: Female
  Weight: 52.15 kg

DRUGS (2)
  1. MIRENA [Suspect]
     Indication: CONTRACEPTION
     Dosage: 20 MCG/24HR, CONT
     Route: 015
     Dates: start: 201202, end: 20130412
  2. MAGNESIUM [Concomitant]

REACTIONS (10)
  - Uterine perforation [None]
  - Injury [None]
  - Abdominal pain [None]
  - General physical health deterioration [None]
  - Anxiety [None]
  - Anhedonia [None]
  - Emotional distress [None]
  - Infection [None]
  - Depression [None]
  - Abdominal pain lower [None]
